FAERS Safety Report 5798066-X (Version None)
Quarter: 2008Q3

REPORT INFORMATION
  Report Type: 
  Country: None (occurrence: None)
  Receive Date: 20080702
  Receipt Date: 20070920
  Transmission Date: 20090109
  Serious: No
  Sender: FDA-Public Use
  Company Number: US-ASTRAZENECA-2007UW22287

PATIENT
  Sex: Male

DRUGS (1)
  1. ZOLADEX [Suspect]
     Dosage: 10.8 MG SAFE SYSTEM STRINGE
     Route: 058

REACTIONS (1)
  - DEVICE MALFUNCTION [None]
